FAERS Safety Report 22305879 (Version 1)
Quarter: 2023Q2

REPORT INFORMATION
  Report Type: Other
  Country: US (occurrence: US)
  Receive Date: 20230511
  Receipt Date: 20230511
  Transmission Date: 20230721
  Serious: No
  Sender: FDA-Public Use
  Company Number: US-ALVOGEN-2022088926

PATIENT
  Age: 61 Year
  Sex: Male

DRUGS (2)
  1. PREGABALIN [Suspect]
     Active Substance: PREGABALIN
     Indication: Neuropathy peripheral
     Dosage: BY MOUTH, STARTED ON DAY 77.
     Route: 048
  2. PREGABALIN [Suspect]
     Active Substance: PREGABALIN
     Indication: Neuropathy peripheral
     Dosage: BY MOUTH, ON DAY 89?EFFECTIVE FOR NEUROPATHIC PAIN BILATERALLY IN HIS HANDS AND FEET
     Route: 048

REACTIONS (1)
  - Off label use [Unknown]
